FAERS Safety Report 8105029-8 (Version None)
Quarter: 2012Q1

REPORT INFORMATION
  Report Type: 
  Country: None (occurrence: None)
  Receive Date: 20120201
  Receipt Date: 20120126
  Transmission Date: 20120608
  Serious: Yes (Other)
  Sender: FDA-Public Use
  Company Number: JP-GLAXOSMITHKLINE-B0778415A

PATIENT

DRUGS (4)
  1. ONCOVIN [Concomitant]
     Route: 042
  2. ALKERAN [Suspect]
     Indication: INTRAOCULAR RETINOBLASTOMA
     Dosage: 20.3MG CUMULATIVE DOSE
     Route: 031
  3. ETOPOSIDE [Concomitant]
     Route: 065
  4. CARBOPLATIN [Concomitant]
     Route: 065

REACTIONS (1)
  - ACUTE MYELOID LEUKAEMIA [None]
